FAERS Safety Report 12683656 (Version 4)
Quarter: 2022Q2

REPORT INFORMATION
  Report Type: Spontaneous
  Country: CA (occurrence: None)
  Receive Date: 20160825
  Receipt Date: 20220609
  Transmission Date: 20220720
  Serious: Yes (Death)
  Sender: FDA-Public Use
  Company Number: CA-ROCHE-1818728

PATIENT
  Age: 62 Year
  Sex: Female

DRUGS (14)
  1. VECTIBIX [Suspect]
     Active Substance: PANITUMUMAB
     Indication: Product used for unknown indication
     Dosage: THERAPY DURATION: 2 MONTHS
     Route: 065
     Dates: start: 201407, end: 201408
  2. VECTIBIX [Suspect]
     Active Substance: PANITUMUMAB
     Route: 065
  3. VECTIBIX [Suspect]
     Active Substance: PANITUMUMAB
     Dosage: SINGLE-USE VIAL
     Route: 065
  4. LEUCOVORIN [Suspect]
     Active Substance: LEUCOVORIN
     Indication: Colorectal cancer metastatic
     Route: 065
  5. FLUOROURACIL [Suspect]
     Active Substance: FLUOROURACIL
     Indication: Colorectal cancer metastatic
     Route: 065
  6. FLUOROURACIL [Suspect]
     Active Substance: FLUOROURACIL
     Route: 065
  7. IRINOTECAN [Suspect]
     Active Substance: IRINOTECAN
     Indication: Colorectal cancer metastatic
     Route: 065
  8. IRINOTECAN [Suspect]
     Active Substance: IRINOTECAN
     Route: 065
  9. PANITUMUMAB [Suspect]
     Active Substance: PANITUMUMAB
     Indication: Product used for unknown indication
     Route: 042
  10. LEUCOVORIN CALCIUM [Suspect]
     Active Substance: LEUCOVORIN CALCIUM
     Indication: Colorectal cancer metastatic
     Route: 065
  11. IRINOTECAN HYDROCHLORIDE [Suspect]
     Active Substance: IRINOTECAN HYDROCHLORIDE
     Indication: Colorectal cancer metastatic
     Route: 065
  12. AVASTIN [Suspect]
     Active Substance: BEVACIZUMAB
     Indication: Colorectal cancer metastatic
     Route: 042
     Dates: start: 201312, end: 201401
  13. AVASTIN [Suspect]
     Active Substance: BEVACIZUMAB
     Route: 042
  14. AVASTIN [Suspect]
     Active Substance: BEVACIZUMAB
     Route: 042

REACTIONS (2)
  - Disease progression [Fatal]
  - Malignant neoplasm progression [Fatal]
